FAERS Safety Report 5285269-6 (Version None)
Quarter: 2007Q1

REPORT INFORMATION
  Report Type: 
  Country: None (occurrence: None)
  Receive Date: 20070328
  Receipt Date: 20070313
  Transmission Date: 20070707
  Serious: Yes (Hospitalization)
  Sender: FDA-Public Use
  Company Number: 310001L07TUR

PATIENT
  Age: 21 Year
  Sex: Female

DRUGS (6)
  1. GONAL-F [Suspect]
     Indication: ASSISTED FERTILISATION
     Dosage: SEE IMAGE
  2. GONAL-F [Suspect]
     Indication: ASSISTED FERTILISATION
     Dosage: SEE IMAGE
  3. GONAL-F [Suspect]
     Indication: ASSISTED FERTILISATION
     Dosage: SEE IMAGE
  4. PROFASI HP [Suspect]
     Indication: ASSISTED FERTILISATION
     Dosage: 5000 IU, INTRAMUSCULAR
     Route: 030
  5. LEUPROLIDE ACETATE [Concomitant]
  6. PROPOFOL [Concomitant]

REACTIONS (5)
  - CEREBRAL ARTERY THROMBOSIS [None]
  - CEREBRAL INFARCTION [None]
  - CEREBROVASCULAR ACCIDENT [None]
  - HAEMATOCRIT DECREASED [None]
  - HAEMOGLOBIN DECREASED [None]
